FAERS Safety Report 8326958-6 (Version None)
Quarter: 2012Q2

REPORT INFORMATION
  Report Type: 
  Country: None (occurrence: None)
  Receive Date: 20120501
  Receipt Date: 20120423
  Transmission Date: 20120825
  Serious: Yes (Hospitalization)
  Sender: FDA-Public Use
  Company Number: NL-ABBOTT-12P-114-0930597-00

PATIENT
  Age: 56 Year
  Sex: Male

DRUGS (2)
  1. MESALAMINE [Suspect]
     Indication: CROHN'S DISEASE
     Route: 065
  2. MESALAMINE [Suspect]
     Route: 065

REACTIONS (2)
  - ABDOMINAL PAIN UPPER [None]
  - DIARRHOEA [None]
